FAERS Safety Report 14452844 (Version 5)
Quarter: 2024Q3

REPORT INFORMATION
  Report Type: Report from Study
  Country: DE (occurrence: DE)
  Receive Date: 20180129
  Receipt Date: 20240827
  Transmission Date: 20241016
  Serious: Yes (Death, Hospitalization)
  Sender: AEGERION
  Company Number: DE-AEGERION PHARMACEUTICAL, INC-AEGR003555

PATIENT

DRUGS (7)
  1. MYALEPT [Suspect]
     Active Substance: METRELEPTIN
     Indication: Familial partial lipodystrophy
     Dosage: 5 MG, QD
     Route: 058
     Dates: start: 20170825
  2. PANTOPRAZOLE SODIUM [Concomitant]
     Active Substance: PANTOPRAZOLE SODIUM
     Indication: Portal hypertension
     Dosage: 40 MG, UNK
     Route: 048
  3. CARVEDILOL [Concomitant]
     Active Substance: CARVEDILOL
     Indication: Portal hypertension
     Dosage: 2.5 MG, UNK
     Route: 048
  4. METFORMIN [Concomitant]
     Active Substance: METFORMIN HYDROCHLORIDE
     Indication: Diabetes mellitus
     Dosage: 2000 MG, UNK
     Route: 048
  5. Insulin Lispro Humalog [Concomitant]
     Indication: Diabetes mellitus
     Dosage: 20 IE, UNK
     Route: 058
  6. Insulin Glargine Toujeo [Concomitant]
     Indication: Diabetes mellitus
     Dosage: 30 IE, UNK
     Route: 058
  7. FLUVASTATIN [Concomitant]
     Active Substance: FLUVASTATIN SODIUM
     Indication: Dyslipidaemia
     Dosage: 20 MG, UNK
     Route: 048
     Dates: start: 20171129

REACTIONS (7)
  - Disease progression [Fatal]
  - Acute myocardial infarction [Fatal]
  - Cardiogenic shock [Fatal]
  - Acute kidney injury [Fatal]
  - Glomerular filtration rate decreased [Unknown]
  - Blood creatinine increased [Unknown]
  - Therapy cessation [Not Recovered/Not Resolved]

NARRATIVE: CASE EVENT DATE: 20171229
